FAERS Safety Report 9305392 (Version 1)
Quarter: 2013Q2

REPORT INFORMATION
  Report Type: Report from Study
  Country: BR (occurrence: BR)
  Receive Date: 20130523
  Receipt Date: 20130523
  Transmission Date: 20140414
  Serious: Yes (Other)
  Sender: FDA-Public Use
  Company Number: PHHY2013BR051404

PATIENT
  Sex: Male

DRUGS (1)
  1. SANDOSTATIN LAR [Suspect]
     Indication: BONE DEVELOPMENT ABNORMAL
     Dosage: 20 MG, UNK
     Route: 030

REACTIONS (3)
  - Pituitary tumour [Unknown]
  - Pain [Unknown]
  - Pain in extremity [Unknown]
